FAERS Safety Report 7027772-4 (Version None)
Quarter: 2010Q4

REPORT INFORMATION
  Report Type: 
  Country: None (occurrence: None)
  Receive Date: 20101001
  Receipt Date: 20101001
  Transmission Date: 20110411
  Serious: Yes (Life-Threatening)
  Sender: FDA-Public Use
  Company Number: None

PATIENT
  Age: 69 Year
  Sex: Female
  Weight: 73.8 kg

DRUGS (1)
  1. DOFETILIDE [Suspect]
     Indication: ATRIAL FIBRILLATION
     Dosage: 500 MCG BID PO
     Route: 048
     Dates: start: 20100923, end: 20100923

REACTIONS (7)
  - APNOEA [None]
  - DYSKINESIA [None]
  - PALPITATIONS [None]
  - PRESYNCOPE [None]
  - PULSE ABSENT [None]
  - SYNCOPE [None]
  - VENTRICULAR ARRHYTHMIA [None]
